FAERS Safety Report 12403371 (Version 1)
Quarter: 2016Q2

REPORT INFORMATION
  Report Type: Spontaneous
  Country: DE (occurrence: DE)
  Receive Date: 20160525
  Receipt Date: 20160525
  Transmission Date: 20160815
  Serious: Yes (Other)
  Sender: FDA-Public Use
  Company Number: DE-FRESENIUS KABI-FK201602904

PATIENT
  Age: 66 Year
  Sex: Female
  Weight: 58 kg

DRUGS (1)
  1. CEFUROXIME (MANUFACTURER UNKNOWN) [Suspect]
     Active Substance: CEFUROXIME
     Indication: RESPIRATORY TRACT INFECTION BACTERIAL
     Route: 048
     Dates: start: 2016, end: 2016

REACTIONS (1)
  - Delirium [Recovered/Resolved]

NARRATIVE: CASE EVENT DATE: 20160508
